FAERS Safety Report 26202351 (Version 1)
Quarter: 2025Q4

REPORT INFORMATION
  Report Type: Report from Study
  Country: US (occurrence: US)
  Receive Date: 20251226
  Receipt Date: 20251226
  Transmission Date: 20260117
  Serious: Yes (Other)
  Sender: TEVA
  Company Number: US-TEVA-VS-3400744

PATIENT
  Age: 58 Year
  Sex: Female

DRUGS (1)
  1. AUSTEDO XR [Suspect]
     Active Substance: DEUTETRABENAZINE
     Indication: Product used for unknown indication
     Dosage: ,QD, QAM
     Route: 065

REACTIONS (7)
  - Suicidal ideation [Unknown]
  - Drug ineffective [Unknown]
  - Confusional state [Unknown]
  - Anxiety [Unknown]
  - Paranasal sinus discomfort [Unknown]
  - Depression [Unknown]
  - Nasopharyngitis [Unknown]
